FAERS Safety Report 6310384-5 (Version None)
Quarter: 2009Q3

REPORT INFORMATION
  Report Type: 
  Country: None (occurrence: None)
  Receive Date: 20090814
  Receipt Date: 20090810
  Transmission Date: 20100115
  Serious: Yes (Death, Other)
  Sender: FDA-Public Use
  Company Number: PHHY2009BR23930

PATIENT
  Sex: Male

DRUGS (1)
  1. DIOVAN [Suspect]
     Indication: HYPERTENSION
     Dosage: 1 DF (80 MG) PER DAY
     Route: 048

REACTIONS (3)
  - AORTIC ANEURYSM RUPTURE [None]
  - COMA [None]
  - MULTI-ORGAN FAILURE [None]
